FAERS Safety Report 20379268 (Version 1)
Quarter: 2022Q1

REPORT INFORMATION
  Report Type: Spontaneous
  Country: US (occurrence: US)
  Receive Date: 20220126
  Receipt Date: 20220126
  Transmission Date: 20220424
  Serious: No
  Sender: FDA-Public Use
  Company Number: US-BIOGEN-2020BI00959884

PATIENT
  Sex: Male

DRUGS (3)
  1. VUMERITY [Suspect]
     Active Substance: DIROXIMEL FUMARATE
     Indication: Multiple sclerosis
     Dosage: ON DAYS 1-7,
     Route: 048
     Dates: start: 202012
  2. VUMERITY [Suspect]
     Active Substance: DIROXIMEL FUMARATE
     Dosage: STARTING ON DAY 8
     Route: 048
     Dates: start: 20201214
  3. VUMERITY [Suspect]
     Active Substance: DIROXIMEL FUMARATE
     Route: 048
     Dates: start: 20201204

REACTIONS (5)
  - Product dose omission in error [Unknown]
  - Fatigue [Unknown]
  - Feeling hot [Unknown]
  - Dyspepsia [Unknown]
  - Flushing [Not Recovered/Not Resolved]
